FAERS Safety Report 19435634 (Version 2)
Quarter: 2021Q2

REPORT INFORMATION
  Report Type: Spontaneous
  Country: FI (occurrence: FI)
  Receive Date: 20210618
  Receipt Date: 20210628
  Transmission Date: 20210717
  Serious: Yes (Other)
  Sender: FDA-Public Use
  Company Number: FI-JNJFOC-20210630227

PATIENT
  Age: 39 Year
  Sex: Female

DRUGS (10)
  1. PRONAXEN [Concomitant]
     Active Substance: NAPROXEN
  2. SPRAVATO [Suspect]
     Active Substance: ESKETAMINE
     Indication: PRODUCT USED FOR UNKNOWN INDICATION
  3. VENTOLINE [SALBUTAMOL] [Concomitant]
     Active Substance: ALBUTEROL SULFATE
  4. PANADOL FORTE [PARACETAMOL] [Concomitant]
  5. VENLAFAXINE [Concomitant]
     Active Substance: VENLAFAXINE HYDROCHLORIDE
  6. OPAMOX [Concomitant]
     Active Substance: OXAZEPAM
  7. VENLAFAXINE [Concomitant]
     Active Substance: VENLAFAXINE HYDROCHLORIDE
  8. BUVENTOL [Concomitant]
     Active Substance: ALBUTEROL SULFATE
     Dosage: 1?2 BREATHS
  9. SPRAVATO [Suspect]
     Active Substance: ESKETAMINE
     Dates: start: 202106
  10. MELATONIN ORION [Concomitant]
     Active Substance: MELATONIN

REACTIONS (3)
  - Hallucination [Unknown]
  - Anxiety [Unknown]
  - Feeling abnormal [Unknown]

NARRATIVE: CASE EVENT DATE: 202106
